FAERS Safety Report 22060874 (Version 1)
Quarter: 2023Q1

REPORT INFORMATION
  Report Type: Spontaneous
  Country: US (occurrence: US)
  Receive Date: 20230303
  Receipt Date: 20230303
  Transmission Date: 20230417
  Serious: No
  Sender: FDA-Public Use
  Company Number: US-EPIHEALTH-2022-US-010459

PATIENT
  Age: 38 Year
  Sex: Female
  Weight: 61.69 kg

DRUGS (1)
  1. RHOFADE [Suspect]
     Active Substance: OXYMETAZOLINE HYDROCHLORIDE
     Indication: Rosacea
     Dosage: APPLIED PEA SIZE ONCE
     Route: 061
     Dates: start: 20220430

REACTIONS (4)
  - Intentional product misuse [Recovered/Resolved]
  - Application site erythema [Not Recovered/Not Resolved]
  - Condition aggravated [Not Recovered/Not Resolved]
  - Application site discomfort [Not Recovered/Not Resolved]

NARRATIVE: CASE EVENT DATE: 20220430
